FAERS Safety Report 19685450 (Version 28)
Quarter: 2022Q4

REPORT INFORMATION
  Report Type: Report from Study
  Country: CA (occurrence: CA)
  Receive Date: 20210811
  Receipt Date: 20221123
  Transmission Date: 20230113
  Serious: Yes (Hospitalization, Other)
  Sender: FDA-Public Use
  Company Number: CA-TAKEDA-CA202008540

PATIENT
  Age: 66 Year
  Sex: Female
  Weight: 53 kg

DRUGS (39)
  1. VELAGLUCERASE ALFA [Suspect]
     Active Substance: VELAGLUCERASE ALFA
     Indication: Gaucher^s disease
     Dosage: 8 DOSAGE FORM, Q2WEEKS
     Route: 042
     Dates: start: 20110902
  2. VELAGLUCERASE ALFA [Suspect]
     Active Substance: VELAGLUCERASE ALFA
     Dosage: 8 DOSAGE FORM, Q2WEEKS
     Route: 042
     Dates: start: 20110902
  3. VELAGLUCERASE ALFA [Suspect]
     Active Substance: VELAGLUCERASE ALFA
     Dosage: 3200 INTERNATIONAL UNIT, Q2WEEKS
     Route: 042
     Dates: start: 20110902
  4. VELAGLUCERASE ALFA [Suspect]
     Active Substance: VELAGLUCERASE ALFA
     Dosage: 3200 INTERNATIONAL UNIT, Q2WEEKS
     Route: 042
     Dates: start: 20110902
  5. VELAGLUCERASE ALFA [Suspect]
     Active Substance: VELAGLUCERASE ALFA
     Dosage: 8 DOSAGE FORM, Q2WEEKS
     Route: 042
     Dates: start: 20110902
  6. VELAGLUCERASE ALFA [Suspect]
     Active Substance: VELAGLUCERASE ALFA
     Dosage: 8 DOSAGE FORM, Q2WEEKS
     Route: 042
     Dates: start: 20110902
  7. VELAGLUCERASE ALFA [Suspect]
     Active Substance: VELAGLUCERASE ALFA
     Dosage: 8 DOSAGE FORM, Q2WEEKS
     Route: 042
     Dates: start: 20110902
  8. VELAGLUCERASE ALFA [Suspect]
     Active Substance: VELAGLUCERASE ALFA
     Dosage: 8 DOSAGE FORM, Q2WEEKS
     Route: 042
     Dates: start: 20110902
  9. VELAGLUCERASE ALFA [Suspect]
     Active Substance: VELAGLUCERASE ALFA
     Dosage: 8 DOSAGE FORM, Q2WEEKS
     Route: 042
     Dates: start: 20110902
  10. VELAGLUCERASE ALFA [Suspect]
     Active Substance: VELAGLUCERASE ALFA
     Dosage: 8 DOSAGE FORM, Q2WEEKS
     Route: 042
     Dates: start: 20110902
  11. VELAGLUCERASE ALFA [Suspect]
     Active Substance: VELAGLUCERASE ALFA
     Dosage: 8 DOSAGE FORM, Q2WEEKS
     Route: 050
     Dates: start: 20110902
  12. VELAGLUCERASE ALFA [Suspect]
     Active Substance: VELAGLUCERASE ALFA
     Dosage: 3200 INTERNATIONAL UNIT, Q2WEEKS
     Route: 050
     Dates: start: 20110902
  13. VELAGLUCERASE ALFA [Suspect]
     Active Substance: VELAGLUCERASE ALFA
     Dosage: 8 DOSAGE FORM, Q2WEEKS
     Route: 050
     Dates: start: 20110902
  14. VELAGLUCERASE ALFA [Suspect]
     Active Substance: VELAGLUCERASE ALFA
     Dosage: 8 DOSAGE FORM, Q2WEEKS
     Route: 042
     Dates: start: 20111102
  15. VELAGLUCERASE ALFA [Suspect]
     Active Substance: VELAGLUCERASE ALFA
     Dosage: 8 DOSAGE FORM, Q2WEEKS
     Route: 042
     Dates: start: 20200303
  16. COVID-19 VACCINE NOS [Suspect]
     Active Substance: COVID-19 VACCINE NOS
     Indication: Product used for unknown indication
     Dosage: UNK
     Route: 065
  17. LEVODOPA [Concomitant]
     Active Substance: LEVODOPA
     Indication: Parkinson^s disease
     Dosage: 300 MILLIGRAM
     Route: 048
     Dates: start: 20211118
  18. ADVIL [Concomitant]
     Active Substance: IBUPROFEN
     Dosage: 200 MILLIGRAM
     Route: 048
     Dates: start: 20220915
  19. CALCIUM [Concomitant]
     Active Substance: CALCIUM
     Dosage: 1 DOSAGE FORM
     Route: 048
     Dates: start: 20220916
  20. ALBUTEROL [Concomitant]
     Active Substance: ALBUTEROL
     Dosage: UNK
     Route: 048
     Dates: start: 20220915
  21. VITAMIN D [Concomitant]
     Active Substance: VITAMIN D NOS
     Dosage: 2 DOSAGE FORM
     Route: 048
     Dates: start: 20220916
  22. RISEDRONATE SODIUM [Concomitant]
     Active Substance: RISEDRONATE SODIUM
     Dosage: 1 DOSAGE FORM
     Route: 048
     Dates: start: 20220916
  23. CARBIDOPA\LEVODOPA [Concomitant]
     Active Substance: CARBIDOPA\LEVODOPA
     Dosage: 2 DOSAGE FORM
     Route: 048
  24. HYDROMORPHONE HCL [Concomitant]
     Active Substance: HYDROMORPHONE HYDROCHLORIDE
     Dosage: UNK
     Route: 048
     Dates: start: 20220914
  25. POLYETHYLENE GLYCOL [Concomitant]
     Active Substance: POLYETHYLENE GLYCOL
     Dosage: UNK
     Route: 048
     Dates: start: 20220914
  26. FLOVENT HFA [Concomitant]
     Active Substance: FLUTICASONE PROPIONATE
     Dosage: UNK
     Route: 048
     Dates: start: 20220915
  27. RIVASTIGMINE TARTRATE [Concomitant]
     Active Substance: RIVASTIGMINE TARTRATE
     Dosage: 1 DOSAGE FORM
     Route: 048
     Dates: start: 20220915
  28. DIETARY SUPPLEMENT [Concomitant]
     Active Substance: DIETARY SUPPLEMENT
     Dosage: UNK
     Route: 065
     Dates: start: 20220915
  29. LACTULOSE [Concomitant]
     Active Substance: LACTULOSE
     Dosage: 15 MILLILITER
     Route: 048
     Dates: start: 20221014
  30. BACLOFEN [Concomitant]
     Active Substance: BACLOFEN
     Dosage: 2.5 MILLIGRAM
     Route: 048
     Dates: start: 20221008
  31. VITAMIN B12 [Concomitant]
     Active Substance: CYANOCOBALAMIN
     Dosage: 1 DOSAGE FORM
     Route: 048
     Dates: start: 20220928
  32. DEXTROMETHORPHAN [Concomitant]
     Active Substance: DEXTROMETHORPHAN
     Dosage: 5 MILLILITER
     Route: 048
  33. NITROGLYCERIN [Concomitant]
     Active Substance: NITROGLYCERIN
     Dosage: 1 DOSAGE FORM
     Route: 060
     Dates: start: 20220915
  34. EPINEPHRINE [Concomitant]
     Active Substance: EPINEPHRINE
     Dosage: 0.5 MILLILITER
     Route: 030
  35. DIPHENHYDRAMINE [Concomitant]
     Active Substance: DIPHENHYDRAMINE
     Dosage: 2 DOSAGE FORM
     Route: 048
     Dates: start: 20220915
  36. OXYGEN [Concomitant]
     Active Substance: OXYGEN
     Dosage: UNK
     Route: 045
     Dates: start: 20220915
  37. DIMENHYDRINATE [Concomitant]
     Active Substance: DIMENHYDRINATE
  38. CYANOCOBALAMIN [Concomitant]
     Active Substance: CYANOCOBALAMIN
  39. ASPIRIN [Concomitant]
     Active Substance: ASPIRIN

REACTIONS (40)
  - Pelvic fracture [Not Recovered/Not Resolved]
  - COVID-19 [Recovered/Resolved]
  - Parkinson^s disease [Not Recovered/Not Resolved]
  - Nervous system disorder [Unknown]
  - Weight fluctuation [Not Recovered/Not Resolved]
  - Musculoskeletal pain [Unknown]
  - Pain in extremity [Unknown]
  - Dysstasia [Unknown]
  - Asthma [Not Recovered/Not Resolved]
  - Bone pain [Not Recovered/Not Resolved]
  - Abdominal pain [Not Recovered/Not Resolved]
  - Nausea [Not Recovered/Not Resolved]
  - Fall [Not Recovered/Not Resolved]
  - Asthenia [Recovering/Resolving]
  - Fatigue [Not Recovered/Not Resolved]
  - Rib fracture [Recovering/Resolving]
  - Urinary tract infection [Recovering/Resolving]
  - Radius fracture [Recovering/Resolving]
  - Mobility decreased [Recovering/Resolving]
  - Duodenal varices [Unknown]
  - Intestinal pseudo-obstruction [Unknown]
  - Balance disorder [Not Recovered/Not Resolved]
  - Poor venous access [Recovered/Resolved]
  - Pulmonary pain [Recovering/Resolving]
  - Lung disorder [Recovering/Resolving]
  - Chest pain [Unknown]
  - Weight decreased [Recovering/Resolving]
  - COVID-19 immunisation [Not Recovered/Not Resolved]
  - Blood pressure decreased [Unknown]
  - Malaise [Not Recovered/Not Resolved]
  - Chest discomfort [Recovering/Resolving]
  - Pallor [Unknown]
  - Oedema peripheral [Not Recovered/Not Resolved]
  - Vein collapse [Recovered/Resolved]
  - Skin laceration [Not Recovered/Not Resolved]
  - Weight increased [Unknown]
  - Body temperature decreased [Unknown]
  - Wrong technique in product usage process [Unknown]
  - Inappropriate schedule of product administration [Recovered/Resolved]
  - Product dose omission issue [Recovered/Resolved]

NARRATIVE: CASE EVENT DATE: 20200303
